FAERS Safety Report 9138894 (Version 1)
Quarter: 2013Q1

REPORT INFORMATION
  Report Type: Other
  Country: US (occurrence: US)
  Receive Date: 20130305
  Receipt Date: 20130305
  Transmission Date: 20140127
  Serious: Yes (Death, Life-Threatening, Hospitalization, Other)
  Sender: FDA-Public Use
  Company Number: US-ENDO PHARMACEUTICALS INC.-PERC20130015

PATIENT
  Age: 50 Year
  Sex: Female
  Weight: 53.75 kg

DRUGS (17)
  1. PERCOCET-5 [Suspect]
     Indication: PAIN
     Dosage: 20/1300 MG
     Route: 048
     Dates: start: 20120327
  2. DACOMITINIB [Suspect]
     Indication: NON-SMALL CELL LUNG CANCER
     Route: 048
     Dates: start: 20120726, end: 20120922
  3. PLACEBO [Suspect]
     Indication: NON-SMALL CELL LUNG CANCER
     Route: 048
     Dates: start: 20120726, end: 20120822
  4. OXYCODONE HCL [Suspect]
     Indication: PAIN
     Route: 048
     Dates: start: 20120810
  5. CLONAZEPAM [Suspect]
     Indication: BIPOLAR DISORDER
     Route: 048
     Dates: start: 20120327
  6. MORPHINE SULFATE [Suspect]
     Indication: PAIN
     Route: 048
     Dates: start: 20120327
  7. OXYCONTIN [Suspect]
     Indication: PAIN
     Route: 048
     Dates: start: 20120810
  8. WELLBUTRIN [Suspect]
     Indication: BIPOLAR DISORDER
     Route: 048
     Dates: start: 20120327
  9. ZYPREXA [Suspect]
     Indication: BIPOLAR DISORDER
     Route: 048
     Dates: start: 20120327
  10. ZYPREXA [Suspect]
     Route: 048
     Dates: start: 20120327
  11. TOPAMAX [Suspect]
     Indication: BIPOLAR DISORDER
     Route: 048
     Dates: start: 20120329
  12. CYMBALTA [Suspect]
     Indication: BIPOLAR DISORDER
     Route: 048
     Dates: start: 20120327
  13. PRAZOSIN [Suspect]
     Indication: HYPERTENSION
     Route: 048
     Dates: start: 20120810
  14. IRON [Concomitant]
     Indication: PROPHYLAXIS
     Dosage: UNKNOWN
     Route: 048
  15. CITRACAL [Concomitant]
     Indication: PROPHYLAXIS
     Dosage: UNKNOWN
     Route: 048
  16. FOLIC ACID [Concomitant]
     Indication: PROPHYLAXIS
     Dosage: UNKNOWN
     Route: 048
  17. VITAMIN B-12 [Concomitant]
     Indication: PROPHYLAXIS
     Dosage: UNKNOWN
     Route: 048

REACTIONS (7)
  - Gastrointestinal haemorrhage [Fatal]
  - Hypovolaemic shock [Fatal]
  - Cardio-respiratory arrest [Not Recovered/Not Resolved]
  - Hypoxia [Not Recovered/Not Resolved]
  - Haematemesis [Not Recovered/Not Resolved]
  - Small intestinal obstruction [Not Recovered/Not Resolved]
  - Hypotension [Not Recovered/Not Resolved]
